FAERS Safety Report 5578277-9 (Version None)
Quarter: 2007Q4

REPORT INFORMATION
  Report Type: 
  Country: None (occurrence: None)
  Receive Date: 20071231
  Receipt Date: 20071219
  Transmission Date: 20080405
  Serious: Yes (Other)
  Sender: FDA-Public Use
  Company Number: CA-PFIZER INC-2007097969

PATIENT
  Sex: Female

DRUGS (12)
  1. DETROL LA [Suspect]
     Indication: HYPERTONIC BLADDER
     Route: 048
     Dates: start: 20071114, end: 20071101
  2. PREMARIN [Concomitant]
     Route: 048
  3. PROVERA [Concomitant]
     Route: 048
  4. CADUET [Concomitant]
     Route: 048
  5. LOSEC I.V. [Concomitant]
     Route: 048
  6. CELEBREX [Concomitant]
     Indication: OSTEOARTHRITIS
     Route: 048
  7. XALATAN [Concomitant]
     Indication: GLAUCOMA
     Route: 047
  8. OMEGA 3-6-9 [Concomitant]
  9. LECITHIN [Concomitant]
  10. ASCORBIC ACID [Concomitant]
  11. GLUCOSAMINE W/CHONDROITIN SULFATES [Concomitant]
  12. FLAXSEED OIL [Concomitant]

REACTIONS (4)
  - BLOOD GLUCOSE INCREASED [None]
  - DRUG INEFFECTIVE [None]
  - MUSCLE SPASMS [None]
  - OCULAR HYPERAEMIA [None]
